FAERS Safety Report 11271323 (Version 1)
Quarter: 2015Q3

REPORT INFORMATION
  Report Type: Spontaneous
  Country: JP (occurrence: JP)
  Receive Date: 20150714
  Receipt Date: 20150714
  Transmission Date: 20151125
  Serious: Yes (Death)
  Sender: FDA-Public Use
  Company Number: PHJP2015JP011836

PATIENT
  Sex: Male

DRUGS (1)
  1. SANDIMMUN INFUSION [Suspect]
     Active Substance: CYCLOSPORINE
     Indication: NEPHROTIC SYNDROME
     Dosage: 20 MG, QD
     Route: 042
     Dates: start: 20150618

REACTIONS (2)
  - Choking [Fatal]
  - Off label use [Unknown]

NARRATIVE: CASE EVENT DATE: 20150618
